FAERS Safety Report 8924015 (Version 1)
Quarter: 2012Q4

REPORT INFORMATION
  Report Type: Spontaneous
  Country: US (occurrence: None)
  Receive Date: 20121121
  Receipt Date: 20121121
  Transmission Date: 20130627
  Serious: No
  Sender: FDA-Public Use
  Company Number: None

PATIENT
  Age: 53 Year
  Sex: Male
  Weight: 158.76 kg

DRUGS (1)
  1. XARELTO [Suspect]
     Indication: AFIB
     Dosage: 1X DAILY WITH EV MEAL, PO
     Route: 048
     Dates: start: 20120115, end: 20120728

REACTIONS (1)
  - Haemorrhage [None]
